FAERS Safety Report 12096379 (Version 2)
Quarter: 2016Q1

REPORT INFORMATION
  Report Type: Spontaneous
  Country: US (occurrence: US)
  Receive Date: 20160220
  Receipt Date: 20160309
  Transmission Date: 20160526
  Serious: Yes (Death, Other)
  Sender: FDA-Public Use
  Company Number: US-AUROBINDO-AUR-APL-2016-01601

PATIENT

DRUGS (4)
  1. TRIMETHOPRIM+SULFAMETHOXAZOLE [Suspect]
     Active Substance: SULFAMETHOXAZOLE\TRIMETHOPRIM
     Indication: PROSTATITIS
     Dosage: UNK
     Route: 065
  2. SYNTHROID [Concomitant]
     Active Substance: LEVOTHYROXINE SODIUM
  3. SIMVASTATIN. [Concomitant]
     Active Substance: SIMVASTATIN
  4. HYDROCHLOROTHIAZIDE. [Concomitant]
     Active Substance: HYDROCHLOROTHIAZIDE

REACTIONS (6)
  - Autoimmune haemolytic anaemia [Fatal]
  - Acute hepatic failure [Fatal]
  - Dyspnoea [Unknown]
  - Jaundice [Unknown]
  - Fatigue [Unknown]
  - Abdominal pain [Unknown]
